FAERS Safety Report 7948969-2 (Version None)
Quarter: 2011Q4

REPORT INFORMATION
  Report Type: 
  Country: None (occurrence: None)
  Receive Date: 20111130
  Receipt Date: 20111125
  Transmission Date: 20120403
  Serious: Yes (Other)
  Sender: FDA-Public Use
  Company Number: CA-PFIZER INC-2011261127

PATIENT
  Age: 54 Year
  Sex: Female

DRUGS (11)
  1. VARENICLINE TARTRATE [Suspect]
     Dosage: 1 MG, UNK
     Dates: start: 20111101, end: 20111101
  2. SENOKOT [Concomitant]
     Indication: FAECES HARD
     Dosage: 8.6 MG, 1X/DAY
  3. PMS-TRAZODONE [Concomitant]
     Indication: PAIN
     Dosage: 50 MG, 1X/DAY AT BEDTIME
  4. VARENICLINE TARTRATE [Suspect]
     Indication: SMOKING CESSATION THERAPY
     Dosage: UNK
     Dates: start: 20110901, end: 20110901
  5. DILAUDID [Concomitant]
     Indication: PAIN
     Dosage: 4 MG, AS NEEDED EVERY 4 HOURS
  6. VARENICLINE TARTRATE [Suspect]
     Dosage: 0.5 MG, 1X/DAY
     Dates: start: 20111101, end: 20111101
  7. TYLENOL W/ CODEINE NO. 3 [Concomitant]
     Indication: PAIN
     Dosage: FORMULATION WITH 30 MG CODEINE AS NEEDED
  8. GABAPENTIN [Concomitant]
     Indication: PAIN
     Dosage: 300 MG, 2X/DAY
  9. HYDROMORPHONE HCL [Concomitant]
     Indication: PAIN
     Dosage: 6 MG, 2X/DAY
  10. APO-FUROSEMIDE [Concomitant]
     Indication: OEDEMA PERIPHERAL
     Dosage: 20 MG, AS NEEDED
  11. NOVO-CLONIDINE [Concomitant]
     Indication: HOT FLUSH
     Dosage: 1 MG, 2X/DAY

REACTIONS (4)
  - ABNORMAL DREAMS [None]
  - HAEMOPTYSIS [None]
  - INSOMNIA [None]
  - NAUSEA [None]
